FAERS Safety Report 6398372-4 (Version None)
Quarter: 2009Q4

REPORT INFORMATION
  Report Type: 
  Country: None (occurrence: None)
  Receive Date: 20091007
  Receipt Date: 20090930
  Transmission Date: 20100525
  Serious: Yes (Other)
  Sender: FDA-Public Use
  Company Number: 2009AL006350

PATIENT
  Age: 66 Year
  Sex: Male

DRUGS (4)
  1. IRINOTECAN HCL [Suspect]
     Indication: RECTAL CANCER
     Dosage: 180 MG/M**2; UNKNOWN; UNK
  2. LEUCOVORIN CALCIUM [Concomitant]
  3. 5-FLUOROURASIL [Concomitant]
  4. RALTITREXED [Concomitant]

REACTIONS (6)
  - CHRONIC MYELOID LEUKAEMIA [None]
  - DRUG INTOLERANCE [None]
  - LEUKOCYTOSIS [None]
  - METASTASES TO LIVER [None]
  - NEUTROPHIL PELGER-HUET ANOMALY PRESENT [None]
  - THROMBOCYTOSIS [None]
